FAERS Safety Report 7560247-2 (Version None)
Quarter: 2011Q2

REPORT INFORMATION
  Report Type: 
  Country: None (occurrence: None)
  Receive Date: 20110621
  Receipt Date: 20110606
  Transmission Date: 20111010
  Serious: Yes (Death)
  Sender: FDA-Public Use
  Company Number: JP-WATSON-2011-04164

PATIENT
  Age: 72 Year
  Sex: Male

DRUGS (3)
  1. CARBOPLATIN [Suspect]
     Indication: NON-SMALL CELL LUNG CANCER
     Dosage: UNK
  2. PACLITAXEL [Suspect]
     Indication: DERMATOMYOSITIS
     Dosage: UNK
  3. PREDNISOLONE ACETATE [Suspect]
     Indication: DERMATOMYOSITIS
     Dosage: 1 MG/KG, UNK

REACTIONS (2)
  - RESPIRATORY FAILURE [None]
  - INTERSTITIAL LUNG DISEASE [None]
